FAERS Safety Report 6954036-7 (Version None)
Quarter: 2010Q3

REPORT INFORMATION
  Report Type: 
  Country: None (occurrence: None)
  Receive Date: 20100829
  Receipt Date: 20100702
  Transmission Date: 20110219
  Serious: No
  Sender: FDA-Public Use
  Company Number: US-ABBOTT-10P-163-0655329-00

PATIENT
  Sex: Male
  Weight: 78.088 kg

DRUGS (1)
  1. NIASPAN [Suspect]
     Indication: LOW DENSITY LIPOPROTEIN INCREASED
     Dosage: AT BEDTIME
     Dates: start: 20100701, end: 20100701

REACTIONS (5)
  - ADVERSE DRUG REACTION [None]
  - BURNING SENSATION [None]
  - FLUSHING [None]
  - PRURITUS [None]
  - SWELLING FACE [None]
